FAERS Safety Report 6396628-2 (Version None)
Quarter: 2009Q4

REPORT INFORMATION
  Report Type: 
  Country: None (occurrence: None)
  Receive Date: 20091012
  Receipt Date: 20091005
  Transmission Date: 20100525
  Serious: Yes (Other)
  Sender: FDA-Public Use
  Company Number: ES-BRISTOL-MYERS SQUIBB COMPANY-14807705

PATIENT
  Sex: Male

DRUGS (2)
  1. ORENCIA [Suspect]
  2. CORTICOSTEROID [Concomitant]

REACTIONS (2)
  - ATRIAL FIBRILLATION [None]
  - CARDIAC FAILURE [None]
